FAERS Safety Report 9934489 (Version 4)
Quarter: 2015Q2

REPORT INFORMATION
  Report Type: Spontaneous
  Country: JP (occurrence: None)
  Receive Date: 20140226
  Receipt Date: 20150504
  Transmission Date: 20150821
  Serious: Yes (Hospitalization)
  Sender: FDA-Public Use
  Company Number: 2010JP004037

PATIENT
  Age: 37 Year
  Sex: Female
  Weight: 58 kg

DRUGS (25)
  1. DIOVAN [Concomitant]
     Active Substance: VALSARTAN
  2. RESPLEN (EPRAZINONE HYDROCHLORIDE) [Concomitant]
  3. MUCODYNE (CARBOCISTEINE) [Concomitant]
     Active Substance: CARBOCYSTEINE
  4. TERNELIN (TIZANIDINE HYDROCHLORIDE) [Concomitant]
  5. GASTER [Concomitant]
     Active Substance: FAMOTIDINE
  6. SELBEX (TEPRENONE) [Concomitant]
     Active Substance: TEPRENONE
  7. ZANTAC [Concomitant]
     Active Substance: RANITIDINE HYDROCHLORIDE
  8. RINDERON-VG (BETAMETHASONE VALERATE, GENTAMICIN SULFATE) [Concomitant]
  9. FERROMIA (FERROUS SODIUM CITRATE) [Concomitant]
  10. BIO-THREE (BACILLUS MESENTERICUS, CLOSTRIDIUM BUTYRICUM, ENTEROCOCCUS FAECALIS) [Concomitant]
  11. METHYLPREDNISOLONE. [Concomitant]
     Active Substance: METHYLPREDNISOLONE
  12. PROGRAF [Suspect]
     Active Substance: TACROLIMUS\TACROLIMUS ANHYDROUS
     Indication: LUPUS NEPHRITIS
     Dosage: 2 MG, UNKNOWN/D, ORAL
     Route: 048
     Dates: start: 20071119, end: 20080518
  13. OPISEZOL-CODEINE (DIHYDROCODEINE PHOSPHATE, GLYCYRRHIZA GLABRA EXTRACT, HERBAL EXTRACT NOS) [Concomitant]
  14. BONALON (ALENDRONATE SODIUM) [Concomitant]
  15. ISODINE GARGLE (POVIDONE-IODINE) [Concomitant]
  16. TAKEPRON (LANSOPRAZOLE) [Concomitant]
     Active Substance: LANSOPRAZOLE
  17. ALLELOCK (OLOPATADINE HYDROCHLORIDE) [Concomitant]
  18. MEDROL [Suspect]
     Active Substance: METHYLPREDNISOLONE
     Indication: LUPUS NEPHRITIS
     Dosage: 12 MG, UINKNOWN/D, ORAL
     Route: 048
     Dates: end: 20080218
  19. ATELEC (CILNIDIPINE) [Concomitant]
     Active Substance: CILNIDIPINE
  20. LOXONIN (LOXOPROFEN SODIUM) [Concomitant]
     Active Substance: LOXOPROFEN SODIUM
  21. MUCOSTA (REBAMIPIDE) [Concomitant]
  22. CLARITH (CLARITHYROMYCIN) [Concomitant]
  23. PURSENNID (SENNA ALEXANDRINA LEAF) [Concomitant]
  24. KERATINAMIN (UREA) [Concomitant]
  25. LOXONIN (LOXOPROFEN SODIUM) [Concomitant]
     Active Substance: LOXOPROFEN SODIUM

REACTIONS (28)
  - Nasopharyngitis [None]
  - Leukoencephalopathy [None]
  - Dermatitis atopic [None]
  - Arthritis [None]
  - Memory impairment [None]
  - Cerebral atrophy [None]
  - Central nervous system lesion [None]
  - Visual field defect [None]
  - Hemianopia homonymous [None]
  - Emotional disorder [None]
  - Irritability [None]
  - Retinal tear [None]
  - Psychiatric symptom [None]
  - Hypertension [None]
  - Constipation [None]
  - Personality change [None]
  - Neologism [None]
  - Musculoskeletal stiffness [None]
  - Rash [None]
  - Vision blurred [None]
  - Quadranopia [None]
  - Upper respiratory tract inflammation [None]
  - Diarrhoea [None]
  - Lymphoma [None]
  - Mental impairment [None]
  - Speech disorder [None]
  - Aphasia [None]
  - Weight decreased [None]

NARRATIVE: CASE EVENT DATE: 20080218
